FAERS Safety Report 25087663 (Version 1)
Quarter: 2025Q1

REPORT INFORMATION
  Report Type: Spontaneous
  Country: US (occurrence: US)
  Receive Date: 20250318
  Receipt Date: 20250318
  Transmission Date: 20250409
  Serious: Yes (Hospitalization)
  Sender: ROCHE
  Company Number: US-ROCHE-10000227169

PATIENT
  Age: 64 Year
  Sex: Female
  Weight: 52.61 kg

DRUGS (3)
  1. HERCEPTIN [Suspect]
     Active Substance: TRASTUZUMAB
     Indication: HER2 positive breast cancer
     Route: 042
     Dates: start: 20240821, end: 20241106
  2. HERCEPTIN [Suspect]
     Active Substance: TRASTUZUMAB
     Route: 042
     Dates: start: 20241106
  3. PACLITAXEL [Concomitant]
     Active Substance: PACLITAXEL
     Indication: HER2 positive breast cancer
     Route: 042
     Dates: start: 20240821, end: 20241106

REACTIONS (13)
  - Subarachnoid haemorrhage [Unknown]
  - Off label use [Unknown]
  - Pain [Recovered/Resolved]
  - Tremor [Unknown]
  - Illness [Unknown]
  - Epistaxis [Recovered/Resolved]
  - Dry skin [Recovering/Resolving]
  - Alopecia [Not Recovered/Not Resolved]
  - Rash [Recovered/Resolved]
  - Arthralgia [Recovered/Resolved]
  - Hypersomnia [Recovered/Resolved]
  - Ill-defined disorder [Recovered/Resolved]
  - Pain [Recovered/Resolved]

NARRATIVE: CASE EVENT DATE: 20240821
